FAERS Safety Report 20226608 (Version 1)
Quarter: 2021Q4

REPORT INFORMATION
  Report Type: Spontaneous
  Country: DE (occurrence: DE)
  Receive Date: 20211224
  Receipt Date: 20211224
  Transmission Date: 20220304
  Serious: Yes (Hospitalization)
  Sender: FDA-Public Use
  Company Number: DE-NOVARTISPH-NVSC2021DE285640

PATIENT
  Age: 58 Year
  Sex: Male

DRUGS (9)
  1. RIVAROXABAN [Suspect]
     Active Substance: RIVAROXABAN
     Indication: Product used for unknown indication
     Dosage: UNK (TABLETTEN)
     Route: 048
  2. ASPIRIN [Suspect]
     Active Substance: ASPIRIN
     Indication: Product used for unknown indication
     Dosage: UNK (100 MG, 1-0-0-0, TABLETTEN)
     Route: 048
  3. SPIRONOLACTONE [Concomitant]
     Active Substance: SPIRONOLACTONE
     Indication: Product used for unknown indication
     Dosage: UNK (50 MG, 0.5-0-0-0, TABLETTEN)
     Route: 048
  4. HUMALOG [Concomitant]
     Active Substance: INSULIN LISPRO
     Indication: Product used for unknown indication
     Dosage: UNK (NACH SCHEMA, INJEKTIONS-/INFUSIONSL?SUNG)
     Route: 058
  5. ALLOPURINOL [Concomitant]
     Active Substance: ALLOPURINOL
     Indication: Product used for unknown indication
     Dosage: UNK (30 MG, 1-0-0-0, TABLETTEN)
     Route: 048
  6. RAMIPRIL [Concomitant]
     Active Substance: RAMIPRIL
     Indication: Product used for unknown indication
     Dosage: UNK (5 MG, 0.5-0-0.5-0, TABLETTEN)
     Route: 048
  7. TORSEMIDE [Concomitant]
     Active Substance: TORSEMIDE
     Indication: Product used for unknown indication
     Dosage: (10 UG, 1-0-0-0, TABLETTEN)
     Route: 048
  8. FERRO SANOL B [Concomitant]
     Indication: Product used for unknown indication
     Dosage: UNK (1-0-0-0, TABLETTEN)
     Route: 048
  9. PANTOPRAZOLE SODIUM [Concomitant]
     Active Substance: PANTOPRAZOLE SODIUM
     Indication: Product used for unknown indication
     Dosage: 20 MG, 1-0-0-0, TABLETTEN
     Route: 048

REACTIONS (3)
  - Syncope [Unknown]
  - Dizziness [Unknown]
  - Deep vein thrombosis [Unknown]
